FAERS Safety Report 7126566-9 (Version None)
Quarter: 2010Q4

REPORT INFORMATION
  Report Type: 
  Country: None (occurrence: None)
  Receive Date: 20101129
  Receipt Date: 20101117
  Transmission Date: 20110411
  Serious: Yes (Life-Threatening)
  Sender: FDA-Public Use
  Company Number: JP-AMGEN-JPNCT2010006427

PATIENT

DRUGS (4)
  1. PANITUMUMAB [Suspect]
     Indication: COLORECTAL CANCER
     Dosage: 6 MG/KG, Q2WK
     Route: 041
     Dates: start: 20100622, end: 20100622
  2. ANTIHISTAMINES [Concomitant]
     Indication: PROPHYLAXIS
     Route: 065
  3. CORTICOSTEROIDS [Concomitant]
     Indication: PROPHYLAXIS
     Route: 065
  4. RINDERON-V [Concomitant]
     Route: 062

REACTIONS (3)
  - BLOOD BILIRUBIN INCREASED [None]
  - DERMATITIS ACNEIFORM [None]
  - HYPOKALAEMIA [None]
